FAERS Safety Report 4437874-4 (Version None)
Quarter: 2004Q3

REPORT INFORMATION
  Report Type: 
  Country: None (occurrence: None)
  Receive Date: 20040827
  Receipt Date: 20040813
  Transmission Date: 20050211
  Serious: Yes (Hospitalization)
  Sender: FDA-Public Use
  Company Number: S04-SWI-03825-01

PATIENT
  Age: 78 Year
  Sex: Female

DRUGS (14)
  1. CITALOPRAM HYDROBROMIDE [Suspect]
     Indication: CARDIAC VALVE DISEASE
     Dosage: 20 MG BID PO
     Route: 048
     Dates: end: 20040624
  2. CITALOPRAM HYDROBROMIDE [Suspect]
     Indication: DEPRESSION
     Dosage: 20 MG BID PO
     Route: 048
     Dates: end: 20040624
  3. CITALOPRAM HYDROBROMIDE [Suspect]
     Indication: HYPERTENSION
     Dosage: 20 MG BID PO
     Route: 048
     Dates: end: 20040624
  4. CITALOPRAM HYDROBROMIDE [Suspect]
     Indication: CARDIAC VALVE DISEASE
     Dosage: 10 DROPS QD PO
     Route: 048
     Dates: end: 20040624
  5. CITALOPRAM HYDROBROMIDE [Suspect]
     Indication: DEPRESSION
     Dosage: 10 DROPS QD PO
     Route: 048
     Dates: end: 20040624
  6. CITALOPRAM HYDROBROMIDE [Suspect]
     Indication: HYPERTENSION
     Dosage: 10 DROPS QD PO
     Route: 048
     Dates: end: 20040624
  7. CONVERSUM COMBI [Concomitant]
  8. CONCOR (BISOPROLOL FUMARATE) [Concomitant]
  9. OMED (BENZOCAINE) [Concomitant]
  10. SEROQUEL [Concomitant]
  11. TOLVON(MIANSERIN HYDROCHLORIDE) [Concomitant]
  12. TIATRAL(ALOXIPRIN) [Concomitant]
  13. XANAX [Concomitant]
  14. CLORAZEPATE DIPOTASSIUM [Concomitant]

REACTIONS (5)
  - AMNESIA [None]
  - BLOOD OSMOLARITY DECREASED [None]
  - CIRCULATORY COLLAPSE [None]
  - CONFUSIONAL STATE [None]
  - HYPONATRAEMIA [None]
